FAERS Safety Report 4926689-6 (Version None)
Quarter: 2006Q1

REPORT INFORMATION
  Report Type: 
  Country: None (occurrence: None)
  Receive Date: 20060228
  Receipt Date: 20050526
  Transmission Date: 20060701
  Serious: No
  Sender: FDA-Public Use
  Company Number: US-GLAXOSMITHKLINE-A0560280A

PATIENT
  Age: 18 Year
  Sex: Female

DRUGS (4)
  1. LAMICTAL [Suspect]
     Indication: BIPOLAR DISORDER
     Route: 048
  2. REMERON [Concomitant]
  3. TRAZODONE [Concomitant]
  4. SEROQUEL [Concomitant]

REACTIONS (1)
  - RASH [None]
